FAERS Safety Report 21635732 (Version 1)
Quarter: 2022Q4

REPORT INFORMATION
  Report Type: Spontaneous
  Country: None (occurrence: US)
  Receive Date: 20221123
  Receipt Date: 20221123
  Transmission Date: 20230113
  Serious: Yes (Other)
  Sender: FDA-Public Use
  Company Number: US-GREER Laboratories, Inc.-2135213

PATIENT
  Age: 12 Year
  Sex: Female
  Weight: 37.273 kg

DRUGS (38)
  1. WHITE OAK POLLEN [Suspect]
     Active Substance: QUERCUS ALBA POLLEN
     Indication: Rhinitis allergic
     Route: 023
     Dates: start: 20221026, end: 20221026
  2. WHITE OAK POLLEN [Suspect]
     Active Substance: QUERCUS ALBA POLLEN
     Route: 023
     Dates: start: 20221026, end: 20221026
  3. EASTERN SYCAMORE POLLEN [Suspect]
     Active Substance: PLATANUS OCCIDENTALIS POLLEN
     Route: 023
     Dates: start: 20221026, end: 20221026
  4. WHITE HICKORY POLLEN [Suspect]
     Active Substance: CARYA TOMENTOSA POLLEN
     Route: 023
     Dates: start: 20221026, end: 20221026
  5. EASTERN COTTONWOOD POLLEN [Suspect]
     Active Substance: POPULUS DELTOIDES POLLEN
     Route: 023
     Dates: start: 20221026, end: 20221026
  6. EASTERN COTTONWOOD POLLEN [Suspect]
     Active Substance: POPULUS DELTOIDES POLLEN
     Route: 023
     Dates: start: 20221026, end: 20221026
  7. BOX ELDER POLLEN [Suspect]
     Active Substance: ACER NEGUNDO POLLEN
     Route: 023
     Dates: start: 20221026, end: 20221026
  8. BOX ELDER POLLEN [Suspect]
     Active Substance: ACER NEGUNDO POLLEN
     Route: 023
     Dates: start: 20221026, end: 20221026
  9. WHITE ASH POLLEN [Suspect]
     Active Substance: FRAXINUS AMERICANA POLLEN
     Route: 023
     Dates: start: 20221026, end: 20221026
  10. WHITE ASH POLLEN [Suspect]
     Active Substance: FRAXINUS AMERICANA POLLEN
     Route: 023
     Dates: start: 20221026, end: 20221026
  11. EASTERN WHITE PINE POLLEN [Suspect]
     Active Substance: PINUS STROBUS POLLEN
     Route: 023
     Dates: start: 20221026, end: 20221026
  12. RIVER BIRCH POLLEN [Suspect]
     Active Substance: BETULA NIGRA POLLEN
     Route: 023
     Dates: start: 20221026, end: 20221026
  13. RIVER BIRCH POLLEN [Suspect]
     Active Substance: BETULA NIGRA POLLEN
     Route: 023
     Dates: start: 20221026, end: 20221026
  14. STANDARDIZED TIMOTHY GRASS POLLEN [Suspect]
     Active Substance: PHLEUM PRATENSE POLLEN
     Route: 023
     Dates: start: 20221026, end: 20221026
  15. STANDARDIZED TIMOTHY GRASS POLLEN [Suspect]
     Active Substance: PHLEUM PRATENSE POLLEN
     Route: 023
     Dates: start: 20221026, end: 20221026
  16. JOHNSON GRASS POLLEN [Suspect]
     Active Substance: SORGHUM HALEPENSE POLLEN
     Route: 023
     Dates: start: 20221026, end: 20221026
  17. LAMBS QUARTERS POLLEN [Suspect]
     Active Substance: CHENOPODIUM ALBUM POLLEN
     Route: 023
     Dates: start: 20221026, end: 20221026
  18. LAMBS QUARTERS POLLEN [Suspect]
     Active Substance: CHENOPODIUM ALBUM POLLEN
     Route: 023
     Dates: start: 20221026, end: 20221026
  19. ENGLISH PLANTAIN POLLEN [Suspect]
     Active Substance: PLANTAGO LANCEOLATA POLLEN
     Route: 023
     Dates: start: 20221026, end: 20221026
  20. ENGLISH PLANTAIN POLLEN [Suspect]
     Active Substance: PLANTAGO LANCEOLATA POLLEN
     Route: 023
     Dates: start: 20221026, end: 20221026
  21. SHORT RAGWEED POLLEN [Suspect]
     Active Substance: AMBROSIA ARTEMISIIFOLIA POLLEN
     Route: 023
     Dates: start: 20221026, end: 20221026
  22. SHORT RAGWEED POLLEN [Suspect]
     Active Substance: AMBROSIA ARTEMISIIFOLIA POLLEN
     Route: 023
     Dates: start: 20221026, end: 20221026
  23. ROUGH REDROOT PIGWEED POLLEN [Suspect]
     Active Substance: AMARANTHUS RETROFLEXUS POLLEN
     Route: 023
     Dates: start: 20221026, end: 20221026
  24. ALTERNARIA ALTERNATA [Suspect]
     Active Substance: ALTERNARIA ALTERNATA
     Route: 023
     Dates: start: 20221026, end: 20221026
  25. ASPERGILLUS FUMIGATUS [Suspect]
     Active Substance: ASPERGILLUS FUMIGATUS
     Route: 023
     Dates: start: 20221026, end: 20221026
  26. FUSARIUM SOLANI [Suspect]
     Active Substance: HAEMATONECTRIA HAEMATOCOCCA
     Route: 023
     Dates: start: 20221026, end: 20221026
  27. AUREOBASIDIUM PULLULANS [Suspect]
     Active Substance: AUREOBASIDIUM PULLULANS VAR. PULLUTANS
     Route: 023
     Dates: start: 20221026, end: 20221026
  28. STANDARDIZED MITE DERMATOPHAGOIDES PTERONYSSINUS [Suspect]
     Active Substance: DERMATOPHAGOIDES PTERONYSSINUS
     Route: 023
     Dates: start: 20221026, end: 20221026
  29. 2 COCKROACH MIX [Suspect]
     Active Substance: BLATELLA GERMANICA\PERIPLANETA AMERICANA
     Route: 023
     Dates: start: 20221026, end: 20221026
  30. STANDARDIZED CAT HAIR [Suspect]
     Active Substance: FELIS CATUS HAIR
     Route: 023
     Dates: start: 20221026, end: 20221026
  31. DOG EPITHELIA [Suspect]
     Active Substance: CANIS LUPUS FAMILIARIS SKIN
     Route: 023
     Dates: start: 20221026, end: 20221026
  32. DOG EPITHELIA [Suspect]
     Active Substance: CANIS LUPUS FAMILIARIS SKIN
     Route: 023
     Dates: start: 20221026, end: 20221026
  33. HORSE EPITHELIA [Suspect]
     Active Substance: EQUUS CABALLUS SKIN
     Route: 023
     Dates: start: 20221026, end: 20221026
  34. RABBIT EPITHELIA [Suspect]
     Active Substance: ORYCTOLAGUS CUNICULUS SKIN
     Route: 023
     Dates: start: 20221026, end: 20221026
  35. HAMSTER EPITHELIA [Suspect]
     Active Substance: MESOCRICETUS AURATUS SKIN
     Route: 023
     Dates: start: 20221026, end: 20221026
  36. HAMSTER EPITHELIA [Suspect]
     Active Substance: MESOCRICETUS AURATUS SKIN
     Route: 023
     Dates: start: 20221026, end: 20221026
  37. HAMSTER EPITHELIA [Suspect]
     Active Substance: MESOCRICETUS AURATUS SKIN
     Route: 023
     Dates: start: 20221026, end: 20221026
  38. MIXED FEATHERS [Suspect]
     Active Substance: ANAS PLATYRHYNCHOS FEATHER\ANSER ANSER FEATHER\GALLUS GALLUS FEATHER
     Route: 023
     Dates: start: 20221026, end: 20221026

REACTIONS (1)
  - Anaphylactic reaction [Recovered/Resolved]

NARRATIVE: CASE EVENT DATE: 20221026
